FAERS Safety Report 6132218-4 (Version None)
Quarter: 2009Q1

REPORT INFORMATION
  Report Type: 
  Country: None (occurrence: None)
  Receive Date: 20090319
  Receipt Date: 20080508
  Transmission Date: 20090719
  Serious: Yes (Other)
  Sender: FDA-Public Use
  Company Number: US-JNJFOC-20080502330

PATIENT
  Age: 47 Year
  Sex: Female

DRUGS (4)
  1. RENOVA [Suspect]
     Indication: THERAPEUTIC SKIN CARE TOPICAL
     Dosage: 2 DOSE (S), TOPICAL
     Route: 061
     Dates: start: 20080415, end: 20080416
  2. MVI (MULTIVITAMINS) [Concomitant]
  3. ULTRAM [Concomitant]
  4. XANAX [Concomitant]

REACTIONS (1)
  - ERYTHEMA [None]
